FAERS Safety Report 7564787-1 (Version None)
Quarter: 2011Q2

REPORT INFORMATION
  Report Type: 
  Country: None (occurrence: None)
  Receive Date: 20110622
  Receipt Date: 20101229
  Transmission Date: 20111010
  Serious: Yes (Death)
  Sender: FDA-Public Use
  Company Number: -MYLANLABS-2010S1021281

PATIENT
  Age: 83 Year
  Sex: Female
  Weight: 43.55 kg

DRUGS (10)
  1. CLOZAPINE [Suspect]
     Indication: PSYCHOTIC DISORDER
     Route: 048
     Dates: start: 20100526, end: 20101021
  2. ZYPREXA [Concomitant]
  3. PRILOSEC [Concomitant]
  4. PLAVIX [Concomitant]
  5. SINEMET [Concomitant]
  6. ARICEPT [Concomitant]
  7. MIRALAX [Concomitant]
  8. CLOZAPINE [Suspect]
     Indication: HALLUCINATION
     Route: 048
     Dates: start: 20100526, end: 20101021
  9. PAXIL [Concomitant]
  10. HALOPERIDOL [Concomitant]

REACTIONS (3)
  - INFECTION [None]
  - CEREBROVASCULAR ACCIDENT [None]
  - CONVULSION [None]
